FAERS Safety Report 4943950-X (Version None)
Quarter: 2006Q1

REPORT INFORMATION
  Report Type: 
  Country: None (occurrence: None)
  Receive Date: 20060313
  Receipt Date: 20060313
  Transmission Date: 20060701
  Serious: Yes (Death)
  Sender: FDA-Public Use
  Company Number: None

PATIENT
  Age: 73 Year
  Sex: Male
  Weight: 85.82 kg

DRUGS (11)
  1. LEVAQUIN [Suspect]
     Indication: PNEUMONIA
     Dosage: 750 MG   LOADING DOSE   IV DRIP
     Route: 041
     Dates: start: 20060307, end: 20060307
  2. LEVAQUIN [Suspect]
     Indication: PNEUMONIA
     Dosage: 250 MG   DAILY   IV DRIP
     Route: 041
     Dates: start: 20060308, end: 20060309
  3. EPI DRIP [Concomitant]
  4. DOPAMAINE [Concomitant]
  5. LEVOPHED [Concomitant]
  6. DOBUTAMINE HCL [Concomitant]
  7. DIPRIVAN [Concomitant]
  8. PEPCID [Concomitant]
  9. ZOSYN [Concomitant]
  10. ROCEPHIN [Concomitant]
  11. MAXIPIME [Concomitant]

REACTIONS (4)
  - ARRHYTHMIA [None]
  - BRADYCARDIA [None]
  - HAEMODIALYSIS [None]
  - HYPOMAGNESAEMIA [None]
